FAERS Safety Report 12812938 (Version 1)
Quarter: 2016Q4

REPORT INFORMATION
  Report Type: Spontaneous
  Country: US (occurrence: US)
  Receive Date: 20161005
  Receipt Date: 20161005
  Transmission Date: 20170207
  Serious: No
  Sender: FDA-Public Use
  Company Number: US-AMGEN-USASP2016059893

PATIENT
  Age: 75 Year
  Sex: Female

DRUGS (1)
  1. PROLIA [Suspect]
     Active Substance: DENOSUMAB
     Indication: PRODUCT USED FOR UNKNOWN INDICATION
     Dosage: UNK
     Route: 065
     Dates: start: 20160428

REACTIONS (10)
  - Blood pressure increased [Unknown]
  - Pain in extremity [Unknown]
  - Musculoskeletal pain [Unknown]
  - Drug ineffective [Unknown]
  - Pain [Unknown]
  - Neck pain [Unknown]
  - Arthralgia [Unknown]
  - Gait disturbance [Unknown]
  - Weight increased [Unknown]
  - Pain in jaw [Unknown]

NARRATIVE: CASE EVENT DATE: 2016
